FAERS Safety Report 15560319 (Version 1)
Quarter: 2018Q4

REPORT INFORMATION
  Report Type: Spontaneous
  Country: US (occurrence: US)
  Receive Date: 20181023
  Receipt Date: 20181023
  Transmission Date: 20190205
  Serious: Yes (Hospitalization)
  Sender: FDA-Public Use
  Company Number: None

PATIENT
  Age: 73 Year
  Sex: Male
  Weight: 88.1 kg

DRUGS (12)
  1. NEURONTIN [Concomitant]
     Active Substance: GABAPENTIN
  2. MAGOX [Concomitant]
  3. WARFARIN [Suspect]
     Active Substance: WARFARIN
     Indication: PRODUCT USED FOR UNKNOWN INDICATION
     Dosage: 7MG TTHSS PO; 5MG MWF PO
     Route: 048
  4. LANTUS [Concomitant]
     Active Substance: INSULIN GLARGINE
  5. SYNTHROID [Concomitant]
     Active Substance: LEVOTHYROXINE SODIUM
  6. VITAMIN B12 [Concomitant]
     Active Substance: CYANOCOBALAMIN
  7. OSCAL [Concomitant]
     Active Substance: CALCIUM CARBONATE
  8. CELEXA [Concomitant]
     Active Substance: CITALOPRAM HYDROBROMIDE
  9. WARFARIN [Suspect]
     Active Substance: WARFARIN
     Dosage: ?          OTHER FREQUENCY:MWF;?
     Route: 048
  10. RICALTROL [Concomitant]
  11. ATARA X [Concomitant]
  12. NOVOLOG [Concomitant]
     Active Substance: INSULIN ASPART

REACTIONS (3)
  - Anticoagulation drug level above therapeutic [None]
  - Transfusion [None]
  - Peritoneal haemorrhage [None]

NARRATIVE: CASE EVENT DATE: 20180923
